FAERS Safety Report 5707115-6 (Version None)
Quarter: 2008Q2

REPORT INFORMATION
  Report Type: 
  Country: None (occurrence: None)
  Receive Date: 20080416
  Receipt Date: 20080404
  Transmission Date: 20081010
  Serious: Yes (Hospitalization)
  Sender: FDA-Public Use
  Company Number: US-ELI_LILLY_AND_COMPANY-US200802004512

PATIENT
  Sex: Female
  Weight: 80.726 kg

DRUGS (5)
  1. FORTEO [Suspect]
     Indication: OSTEOPOROSIS
     Dosage: UNK, UNK
     Dates: start: 20071218, end: 20080101
  2. FORTEO [Suspect]
     Dates: start: 20080101
  3. LANTUS [Concomitant]
     Dosage: SLIDING SCALE
     Dates: start: 19980101
  4. FUROSEMIDE [Concomitant]
     Dosage: 60 MG, DAILY (1/D)
  5. HUMALOG [Concomitant]

REACTIONS (2)
  - CHOLELITHIASIS [None]
  - OEDEMA PERIPHERAL [None]
